FAERS Safety Report 4300573-3 (Version None)
Quarter: 2004Q1

REPORT INFORMATION
  Report Type: 
  Country: None (occurrence: None)
  Receive Date: 20040217
  Receipt Date: 20040204
  Transmission Date: 20041129
  Serious: No
  Sender: FDA-Public Use
  Company Number: 04H-090-0249501-00

PATIENT

DRUGS (1)
  1. HEPARIN SODIUM [Suspect]
     Indication: ANTICOAGULANT THERAPY
     Dosage: SEE IMAGE

REACTIONS (2)
  - CARDIAC PROCEDURE COMPLICATION [None]
  - ISCHAEMIC STROKE [None]
